FAERS Safety Report 5168394-X (Version None)
Quarter: 2006Q4

REPORT INFORMATION
  Report Type: 
  Country: None (occurrence: None)
  Receive Date: 20061201
  Receipt Date: 20061120
  Transmission Date: 20070319
  Serious: Yes (Hospitalization, Other)
  Sender: FDA-Public Use
  Company Number: 148009ISR

PATIENT
  Age: 23 Year
  Sex: Female

DRUGS (2)
  1. CLARITHROMYCIN [Suspect]
     Indication: TONSILLITIS
     Dosage: 500 MG (250 MG, 2 IN 1 D)
     Dates: start: 20060824, end: 20060825
  2. LAMOTRIGINE [Suspect]
     Dosage: ORAL
     Route: 048
     Dates: start: 20020101

REACTIONS (4)
  - BODY TEMPERATURE INCREASED [None]
  - CONVULSION [None]
  - DRUG INTERACTION [None]
  - UPPER RESPIRATORY TRACT INFECTION [None]
